FAERS Safety Report 4721321-9 (Version None)
Quarter: 2005Q3

REPORT INFORMATION
  Report Type: 
  Country: None (occurrence: None)
  Receive Date: 20050721
  Receipt Date: 20040617
  Transmission Date: 20060218
  Serious: Yes (Other)
  Sender: FDA-Public Use
  Company Number: US-BRISTOL-MYERS SQUIBB COMPANY-12618476

PATIENT
  Age: 60 Year
  Sex: Male
  Weight: 79 kg

DRUGS (13)
  1. COUMADIN [Suspect]
     Indication: ATRIAL FIBRILLATION
     Dosage: WK1-5MG THEN 10MG ALTERN W/7.5MG. WK2-7.5MG FOR 5 DAYS, ON DAY6 10MG;6/10=12.5MG,6/12+6/13=10MG
     Route: 048
     Dates: start: 20040514
  2. VERAPAMIL [Concomitant]
  3. VASOTEC RPD [Concomitant]
  4. DIGOXIN [Concomitant]
  5. LORATADINE [Concomitant]
  6. SINGULAIR [Concomitant]
  7. ALPRAZOLAM [Concomitant]
  8. TRAZODONE HCL [Concomitant]
  9. PRILOSEC [Concomitant]
  10. NASACORT [Concomitant]
  11. MEGAVITAMINS [Concomitant]
  12. VITAMIN E [Concomitant]
  13. ESTER-C [Concomitant]

REACTIONS (4)
  - ARTHRALGIA [None]
  - HEADACHE [None]
  - INTERNATIONAL NORMALISED RATIO DECREASED [None]
  - THERAPEUTIC RESPONSE DECREASED [None]
